FAERS Safety Report 22086363 (Version 8)
Quarter: 2023Q2

REPORT INFORMATION
  Report Type: Report from Study
  Country: JP (occurrence: JP)
  Receive Date: 20230312
  Receipt Date: 20230607
  Transmission Date: 20230721
  Serious: Yes (Death, Other)
  Sender: FDA-Public Use
  Company Number: JP-002147023-NVSJ2023JP003081

PATIENT
  Age: 78 Year
  Sex: Male
  Weight: 58.1 kg

DRUGS (7)
  1. ENTRESTO [Suspect]
     Active Substance: SACUBITRIL\VALSARTAN
     Indication: Cardiac failure chronic
     Dosage: 50 MG, BID
     Route: 048
     Dates: start: 20220307
  2. CARVEDILOL [Concomitant]
     Active Substance: CARVEDILOL
     Indication: Cardiac failure
     Dosage: UNK
     Route: 065
     Dates: end: 20230301
  3. FEBUXOSTAT [Concomitant]
     Active Substance: FEBUXOSTAT
     Indication: Hyperuricaemia
     Dosage: UNK
     Route: 065
     Dates: end: 20230301
  4. FUROSEMIDE [Concomitant]
     Active Substance: FUROSEMIDE
     Indication: Cardiac failure
     Dosage: UNK
     Route: 065
     Dates: end: 20230301
  5. XARELTO [Concomitant]
     Active Substance: RIVAROXABAN
     Indication: Cardiac failure
     Dosage: UNK
     Route: 065
     Dates: end: 20230301
  6. ASPIRIN [Concomitant]
     Active Substance: ASPIRIN
     Indication: Cardiac failure
     Dosage: UNK
     Route: 065
     Dates: end: 20230301
  7. PRAVASTATIN [Concomitant]
     Active Substance: PRAVASTATIN
     Indication: Dyslipidaemia
     Dosage: UNK
     Route: 065
     Dates: end: 20230301

REACTIONS (5)
  - Cardiac failure [Fatal]
  - Sudden cardiac death [Fatal]
  - Hyperkalaemia [Unknown]
  - Concomitant disease aggravated [Unknown]
  - Bradycardia [Unknown]

NARRATIVE: CASE EVENT DATE: 20221126
